FAERS Safety Report 9683108 (Version 1)
Quarter: 2013Q4

REPORT INFORMATION
  Report Type: Spontaneous
  Country: US (occurrence: US)
  Receive Date: 20131112
  Receipt Date: 20131112
  Transmission Date: 20140711
  Serious: No
  Sender: FDA-Public Use
  Company Number: US-PFIZER INC-2013318518

PATIENT
  Sex: Female

DRUGS (1)
  1. ZOLOFT [Suspect]
     Dosage: UNK

REACTIONS (6)
  - Disturbance in attention [Unknown]
  - Irritability [Unknown]
  - Nervousness [Unknown]
  - Myalgia [Unknown]
  - Tension [Unknown]
  - Negative thoughts [Unknown]
